FAERS Safety Report 8531187-7 (Version None)
Quarter: 2012Q3

REPORT INFORMATION
  Report Type: 
  Country: None (occurrence: None)
  Receive Date: 20120723
  Receipt Date: 20120709
  Transmission Date: 20120928
  Serious: Yes (Other)
  Sender: FDA-Public Use
  Company Number: FR-ELI_LILLY_AND_COMPANY-FR201205009626

PATIENT
  Age: 37 Year
  Sex: Female
  Weight: 52 kg

DRUGS (6)
  1. CYMBALTA [Suspect]
     Dosage: 60 MG, QD
     Dates: start: 20120306, end: 20120525
  2. CYMBALTA [Suspect]
     Dosage: 30 MG, QD
     Dates: start: 20120101
  3. CYMBALTA [Suspect]
     Indication: DEPRESSION
     Dosage: 60 MG, QD
     Route: 048
     Dates: start: 20110816, end: 20120228
  4. CYMBALTA [Suspect]
     Dosage: 30 MG, QD
     Dates: start: 20120101, end: 20120101
  5. CYMBALTA [Suspect]
     Dosage: 30 MG, QOD
     Dates: start: 20120528, end: 20120101
  6. LEXOMIL [Concomitant]
     Indication: SLEEP DISORDER
     Dosage: UNK
     Dates: start: 20120306

REACTIONS (11)
  - ABDOMINAL PAIN [None]
  - DRUG WITHDRAWAL SYNDROME [None]
  - DECREASED APPETITE [None]
  - HEADACHE [None]
  - DIARRHOEA [None]
  - VERTIGO [None]
  - DIZZINESS [None]
  - VISUAL IMPAIRMENT [None]
  - ASTHENIA [None]
  - NAUSEA [None]
  - FATIGUE [None]
